FAERS Safety Report 4590345-7 (Version None)
Quarter: 2005Q1

REPORT INFORMATION
  Report Type: 
  Country: None (occurrence: None)
  Receive Date: 20050217
  Receipt Date: 20050203
  Transmission Date: 20050727
  Serious: No
  Sender: FDA-Public Use
  Company Number: 211931

PATIENT
  Age: 38 Year
  Sex: Male

DRUGS (2)
  1. RAPTIVA [Suspect]
     Indication: PSORIASIS
     Dosage: 1/WEEK
     Dates: start: 20050103, end: 20050114
  2. HYDROCHLOROTHIAZIDE [Concomitant]

REACTIONS (4)
  - BLOOD CHOLESTEROL INCREASED [None]
  - DIZZINESS [None]
  - HYPOTENSION [None]
  - LOSS OF CONSCIOUSNESS [None]
